FAERS Safety Report 9040083 (Version 1)
Quarter: 2013Q1

REPORT INFORMATION
  Report Type: Report from Study
  Country: US (occurrence: US)
  Receive Date: 20130130
  Receipt Date: 20130130
  Transmission Date: 20140127
  Serious: No
  Sender: FDA-Public Use
  Company Number: US-ABBOTT-12P-163-0951430-00

PATIENT
  Age: 51 Year
  Sex: Female

DRUGS (4)
  1. HUMIRA 40 MG/0.8 ML PEN [Suspect]
     Indication: RHEUMATOID ARTHRITIS
     Dates: start: 201204
  2. VICODIN [Concomitant]
     Indication: BACK PAIN
  3. VICODIN [Concomitant]
     Indication: ARTHRITIS
  4. VICODIN [Concomitant]
     Indication: POSTOPERATIVE ANALGESIA

REACTIONS (1)
  - Dyspnoea [Unknown]
